FAERS Safety Report 14584611 (Version 1)
Quarter: 2018Q1

REPORT INFORMATION
  Report Type: Spontaneous
  Country: BA (occurrence: BA)
  Receive Date: 20180301
  Receipt Date: 20180301
  Transmission Date: 20180509
  Serious: Yes (Hospitalization, Other)
  Sender: FDA-Public Use
  Company Number: BA-CIPLA LTD.-2018BA07176

PATIENT

DRUGS (21)
  1. DIAZEPAM. [Suspect]
     Active Substance: DIAZEPAM
     Indication: PRODUCT USED FOR UNKNOWN INDICATION
     Dosage: 3 DF, DAILY, DIASEPAM TBL. A 5 MG 3X1
     Route: 065
  2. HALOPERIDOL. [Suspect]
     Active Substance: HALOPERIDOL
     Dosage: 1 DF, DAILY, HALOPERIDOL TBL. A 5 MG 1 + 1 + 2
     Route: 065
  3. CARBAMAZEPINE. [Suspect]
     Active Substance: CARBAMAZEPINE
     Indication: EPILEPSY
     Dosage: 1 DF, DAILY
     Route: 065
  4. VITAMIN B COMPLEX [Suspect]
     Active Substance: CYANOCOBALAMIN\DEXPANTHENOL\NIACINAMIDE\PYRIDOXINE HYDROCHLORIDE\RIBOFLAVIN 5^-PHOSPHATE SODIUM\THIAMINE HYDROCHLORIDE\VITAMIN B COMPLEX
     Indication: PRODUCT USED FOR UNKNOWN INDICATION
     Dosage: 3 DF, DAILY, FOR NEXT FIVE MONTHS
     Route: 065
  5. PROMAZINE [Suspect]
     Active Substance: PROMAZINE
     Dosage: 1.5 DF, DAILY, PROMAZINE TBL. A 100 MG 1 + 1 + 1.5
     Route: 065
  6. LISINOPRIL. [Suspect]
     Active Substance: LISINOPRIL
     Indication: HYPERTENSION
     Dosage: 1 DF, DAILY
     Route: 065
  7. HALOPERIDOL. [Suspect]
     Active Substance: HALOPERIDOL
     Dosage: 2 DF, DAILY, HALOPERIDOL TBL. A 5 MG 1 + 1 + 2
     Route: 065
  8. PYRAZINAMIDE. [Suspect]
     Active Substance: PYRAZINAMIDE
     Indication: TUBERCULOSIS
     Dosage: 1 DF, EVERY 4 DAYS, FOR FIRST THREE MONTHS
     Route: 065
  9. PROMAZINE [Suspect]
     Active Substance: PROMAZINE
     Dosage: 1 DF, DAILY, PROMAZINE TBL. A 100 MG 1 + 1 + 1.5
  10. RIFAMPICIN [Suspect]
     Active Substance: RIFAMPIN
     Indication: TUBERCULOSIS
     Dosage: 1 DF, EVERY 4 DAYS, FOR NEXT FIVE MONTHS
     Route: 065
  11. ISONIAZID. [Suspect]
     Active Substance: ISONIAZID
     Indication: TUBERCULOSIS
     Dosage: 1 DF, EVERY 4 DAYS
     Route: 065
  12. HALOPERIDOL. [Suspect]
     Active Substance: HALOPERIDOL
     Indication: PSYCHOTIC DISORDER
     Dosage: 1 DF, DAILY, HALOPERIDOL TBL. A 5 MG 1 + 1 + 2
     Route: 065
  13. RIFAMPICIN [Suspect]
     Active Substance: RIFAMPIN
     Dosage: 1 DF, EVERY 4 DAYS, FOR FIRST THREE MONTHS
     Route: 065
  14. AMOXYCILLIN [Suspect]
     Active Substance: AMOXICILLIN
     Indication: PRODUCT USED FOR UNKNOWN INDICATION
     Dosage: 3 DF, DAILY
     Route: 065
  15. ETHAMBUTOL [Suspect]
     Active Substance: ETHAMBUTOL HYDROCHLORIDE
     Indication: TUBERCULOSIS
     Dosage: 1 DF, EVERY 4 DAYS, FOR FIRST THREE MONTHS
     Route: 065
  16. ISONIAZID. [Suspect]
     Active Substance: ISONIAZID
     Dosage: 1 DF, EVERY 4 DAYS, FOR NEXT FIVE MONTHS
     Route: 065
  17. ETHAMBUTOL [Suspect]
     Active Substance: ETHAMBUTOL HYDROCHLORIDE
     Dosage: 1 DF, EVERY 4 DAYS FOR NEXT FIVE MONTHS
     Route: 065
  18. BIPERIDEN HYDROCHLORIDE [Suspect]
     Active Substance: BIPERIDEN HYDROCHLORIDE
     Indication: PRODUCT USED FOR UNKNOWN INDICATION
     Dosage: 1 DF, DAILY
     Route: 065
  19. SODIUM VALPROATE [Suspect]
     Active Substance: VALPROATE SODIUM
     Indication: EPILEPSY
     Dosage: 2 DF, EVERY 12 HOURS
     Route: 065
  20. STREPTOMYCIN [Suspect]
     Active Substance: STREPTOMYCIN\STREPTOMYCIN SULFATE
     Indication: TUBERCULOSIS
     Dosage: 1 DF, AMPOULE, DAILY
     Route: 030
  21. PROMAZINE [Suspect]
     Active Substance: PROMAZINE
     Indication: PSYCHOTIC DISORDER
     Dosage: 1 DF, DAILY, PROMAZINE TBL. A 100 MG 1 + 1 + 1.5
     Route: 065

REACTIONS (3)
  - Water intoxication [Recovered/Resolved]
  - Urinary incontinence [Recovering/Resolving]
  - Hyponatraemia [Recovered/Resolved]
